FAERS Safety Report 7768614-9 (Version None)
Quarter: 2011Q3

REPORT INFORMATION
  Report Type: 
  Country: None (occurrence: None)
  Receive Date: 20110922
  Receipt Date: 20110509
  Transmission Date: 20111222
  Serious: No
  Sender: FDA-Public Use
  Company Number: US-ASTRAZENECA-2011SE27410

PATIENT
  Age: 49 Year
  Sex: Male
  Weight: 113.4 kg

DRUGS (2)
  1. SEROQUEL [Suspect]
     Indication: BIPOLAR I DISORDER
     Route: 048
     Dates: start: 20070406
  2. SEROQUEL [Suspect]
     Route: 048

REACTIONS (3)
  - MALAISE [None]
  - WEIGHT INCREASED [None]
  - INTENTIONAL DRUG MISUSE [None]
